FAERS Safety Report 5670499-1 (Version None)
Quarter: 2008Q1

REPORT INFORMATION
  Report Type: 
  Country: None (occurrence: None)
  Receive Date: 20080318
  Receipt Date: 20080307
  Transmission Date: 20080703
  Serious: Yes (Other)
  Sender: FDA-Public Use
  Company Number: CO-WYE-H03078608

PATIENT
  Sex: Male
  Weight: 13 kg

DRUGS (3)
  1. ADVIL CHILDREN [Suspect]
     Indication: PAIN
     Route: 048
     Dates: start: 20080305, end: 20080305
  2. ADVIL CHILDREN [Suspect]
     Indication: PYREXIA
  3. CEFRADINE [Suspect]
     Route: 048
     Dates: start: 20080304, end: 20080305

REACTIONS (3)
  - DERMATITIS ALLERGIC [None]
  - ERYTHEMA [None]
  - LARYNGEAL INFLAMMATION [None]
